FAERS Safety Report 7176483-3 (Version None)
Quarter: 2010Q4

REPORT INFORMATION
  Report Type: 
  Country: None (occurrence: None)
  Receive Date: 20101215
  Receipt Date: 20101215
  Transmission Date: 20110411
  Serious: Yes (Hospitalization)
  Sender: FDA-Public Use
  Company Number: None

PATIENT
  Age: 82 Year
  Sex: Female
  Weight: 53.978 kg

DRUGS (1)
  1. LAMOTRIGINE [Suspect]
     Indication: COMPLEX PARTIAL SEIZURES
     Dosage: 300MG BID PO APPROXIMATE DOSE TITRATED
     Route: 048
     Dates: start: 20101028, end: 20101127

REACTIONS (6)
  - ACUTE PSYCHOSIS [None]
  - DELUSION [None]
  - OBSESSIVE-COMPULSIVE DISORDER [None]
  - PARANOIA [None]
  - RASH [None]
  - URINARY TRACT INFECTION [None]
